FAERS Safety Report 9887392 (Version 1)
Quarter: 2014Q1

REPORT INFORMATION
  Report Type: Spontaneous
  Country: US (occurrence: US)
  Receive Date: 20140211
  Receipt Date: 20140211
  Transmission Date: 20141002
  Serious: No
  Sender: FDA-Public Use
  Company Number: US-009507513-1402USA000829

PATIENT
  Age: 36 Year
  Sex: Male

DRUGS (5)
  1. DEXAMETHASONE [Suspect]
     Indication: HEADACHE
  2. DEXAMETHASONE [Suspect]
     Indication: VASOGENIC CEREBRAL OEDEMA
  3. IBUPROFEN [Concomitant]
  4. ACETAMINOPHEN [Concomitant]
  5. HEMP [Concomitant]

REACTIONS (1)
  - Drug ineffective [Unknown]
